FAERS Safety Report 6769508-8 (Version None)
Quarter: 2010Q2

REPORT INFORMATION
  Report Type: 
  Country: None (occurrence: None)
  Receive Date: 20100608
  Receipt Date: 20100525
  Transmission Date: 20101027
  Serious: Yes (Death, Hospitalization)
  Sender: FDA-Public Use
  Company Number: MPS1-1000332

PATIENT
  Age: 22 Month
  Sex: Male
  Weight: 11 kg

DRUGS (36)
  1. ALDURAZYME [Suspect]
     Indication: MUCOPOLYSACCHARIDOSIS I
     Dosage: 8.7 MG
     Dates: start: 20100106, end: 20100324
  2. CYPROPHETADINE HYDROCHLORIDE          (CYPROHEPTADINE HYDROCHLORIDE) [Concomitant]
  3. TRICHLORETHYL PHOSPHATE SODIUM           (TRICHLORETHYL PHOSPHATE SODI [Concomitant]
  4. POVIDONE IODINE [Concomitant]
  5. POTASSIUM CHLORIDE [Concomitant]
  6. SODIUM CHLORIDE 0.9% [Concomitant]
  7. FOSCARNET SODIUM [Concomitant]
  8. DEXTROSE 5% [Concomitant]
  9. MANGANESE CHLORIDE (MANGANESE CHLORIDE) [Concomitant]
  10. ZINC SULFATE (ZINC SULFATE) [Concomitant]
  11. CALCIUM GLUCONATE (CALCIUM CLUCONATE) [Concomitant]
  12. TEICOPLANIN (TEICOPLANIN) [Concomitant]
  13. DOUBTAMINE HYDROCHLORIDE (DOUBTAMINE HYDROCHLORIDE) [Concomitant]
  14. MIDAZOLAM HCL [Concomitant]
  15. HEPARIN SODIUM [Concomitant]
  16. NOREPINEPHRINE BITARTRATE [Concomitant]
  17. MULTIVITAMIN [Concomitant]
  18. MICAFUNGIN SODIUM (MICAFUNGIN SODIUM) [Concomitant]
  19. FENTANYL CITRATE [Concomitant]
  20. FLOMOXEF SODIUM (FLOMOXEF SODIUM) [Concomitant]
  21. VORICONAZOLE [Concomitant]
  22. AMINO ACIDS [Concomitant]
  23. DEXMEDETOMIDINE HYDROCHLORIDE (DEXMEDETOMIDINE HYDROCHLORIDE) [Concomitant]
  24. PREDNISOLONE SODIUM SUCCINATE INJ [Concomitant]
  25. PENTAMIDINE ISETHIONATE [Concomitant]
  26. EPINEPHRINE [Concomitant]
  27. MINOCYCLINE HYDROCHLORIDE [Concomitant]
  28. MILRINONE LACTATE [Concomitant]
  29. MEROPENEM [Concomitant]
  30. CEFTAZIDIME [Concomitant]
  31. FUROSEMDIE (FUROSEMIDE) [Concomitant]
  32. PLASMA DESSICATED (DRIED HUMAN PLASMA) [Concomitant]
  33. ISOTONIC SOLUTIONS [Concomitant]
  34. HYPERALIMENTATIVE BASIC SOLUTION [Concomitant]
  35. MAINTENANCE MEDIUM WITH ACETIC ACID AND GLUCOSE) [Concomitant]
  36. GLYCYRRHIZIN GLYCINE CYSTEINE COMBINED DRUG [Concomitant]

REACTIONS (6)
  - CARDIAC FAILURE [None]
  - INTERSTITIAL LUNG DISEASE [None]
  - PNEUMONIA [None]
  - PNEUMONIA VIRAL [None]
  - RESPIRATORY FAILURE [None]
  - STEM CELL TRANSPLANT [None]
